FAERS Safety Report 7917040-8 (Version None)
Quarter: 2011Q4

REPORT INFORMATION
  Report Type: 
  Country: None (occurrence: None)
  Receive Date: 20111114
  Receipt Date: 20111026
  Transmission Date: 20120403
  Serious: Yes (Other)
  Sender: FDA-Public Use
  Company Number: 018127

PATIENT
  Sex: Female

DRUGS (1)
  1. MACUGEN [Suspect]
     Dosage: 0.3 MG, SINGLE, INTRAOCULAR
     Route: 031
     Dates: start: 20090131, end: 20091028

REACTIONS (6)
  - DRUG INEFFECTIVE [None]
  - PALPITATIONS [None]
  - BLINDNESS [None]
  - INJECTION SITE PAIN [None]
  - VISUAL ACUITY REDUCED [None]
  - OEDEMA [None]
